FAERS Safety Report 23278358 (Version 6)
Quarter: 2025Q1

REPORT INFORMATION
  Report Type: Spontaneous
  Country: US (occurrence: US)
  Receive Date: 20231208
  Receipt Date: 20250307
  Transmission Date: 20250409
  Serious: No
  Sender: PFIZER
  Company Number: US-PFIZER INC-PV202300026796

PATIENT
  Age: 76 Year
  Sex: Male

DRUGS (4)
  1. BOSULIF [Suspect]
     Active Substance: BOSUTINIB MONOHYDRATE
     Indication: Leukaemia
     Dosage: 200 MG, DAILY
     Route: 048
  2. BOSULIF [Suspect]
     Active Substance: BOSUTINIB MONOHYDRATE
     Dosage: 400 MG, DAILY
  3. BOSULIF [Suspect]
     Active Substance: BOSUTINIB MONOHYDRATE
     Dosage: 300 MG, DAILY
  4. BOSULIF [Suspect]
     Active Substance: BOSUTINIB MONOHYDRATE
     Dosage: 200 MG, DAILY/ IT^S 100MG HE TAKES 2 TABLETS 2 DAILY
     Route: 048

REACTIONS (1)
  - Hypoacusis [Unknown]
